FAERS Safety Report 8373119-0 (Version None)
Quarter: 2012Q2

REPORT INFORMATION
  Report Type: 
  Country: None (occurrence: None)
  Receive Date: 20120521
  Receipt Date: 20120514
  Transmission Date: 20120825
  Serious: Yes (Death, Hospitalization)
  Sender: FDA-Public Use
  Company Number: US-PFIZER INC-2012072407

PATIENT
  Sex: Male

DRUGS (1)
  1. VFEND [Suspect]
     Indication: APLASTIC ANAEMIA
     Dosage: 200 MG, 2X/DAY

REACTIONS (6)
  - DEHYDRATION [None]
  - PHARYNGITIS [None]
  - DYSPHAGIA [None]
  - DISEASE PROGRESSION [None]
  - APLASTIC ANAEMIA [None]
  - FAILURE TO THRIVE [None]
